FAERS Safety Report 6425516-8 (Version None)
Quarter: 2009Q4

REPORT INFORMATION
  Report Type: 
  Country: None (occurrence: None)
  Receive Date: 20091029
  Receipt Date: 20091019
  Transmission Date: 20100525
  Serious: No
  Sender: FDA-Public Use
  Company Number: 2009011604

PATIENT
  Age: 41 Year
  Sex: Female

DRUGS (3)
  1. FENTORA [Suspect]
     Indication: PAIN
     Dosage: 400 MCG, BU
     Route: 002
     Dates: start: 20080101, end: 20080101
  2. FENTORA [Suspect]
     Indication: SYSTEMIC LUPUS ERYTHEMATOSUS
     Dosage: 400 MCG, BU
     Route: 002
     Dates: start: 20080101, end: 20080101
  3. OXYCONTIN [Concomitant]

REACTIONS (2)
  - DRUG PRESCRIBING ERROR [None]
  - MEDICATION ERROR [None]
